FAERS Safety Report 12559667 (Version 1)
Quarter: 2016Q3

REPORT INFORMATION
  Report Type: Spontaneous
  Country: US (occurrence: US)
  Receive Date: 20160715
  Receipt Date: 20160715
  Transmission Date: 20161109
  Serious: No
  Sender: FDA-Public Use
  Company Number: US-JNJFOC-20160427754

PATIENT
  Age: 42 Year
  Sex: Female
  Weight: 137.89 kg

DRUGS (2)
  1. SUDAFED [Suspect]
     Active Substance: PSEUDOEPHEDRINE HYDROCHLORIDE
     Indication: SINUSITIS
     Dosage: 1 TABLET, 2 TIMES
     Route: 048
  2. SUDAFED [Suspect]
     Active Substance: PSEUDOEPHEDRINE HYDROCHLORIDE
     Route: 048

REACTIONS (5)
  - Adverse event [Recovered/Resolved]
  - Malaise [Recovered/Resolved]
  - Product use issue [Recovered/Resolved]
  - Agitation [Recovered/Resolved]
  - Off label use [Recovered/Resolved]
